FAERS Safety Report 8637480 (Version 2)
Quarter: 2012Q4

REPORT INFORMATION
  Report Type: 
  Country: GB (occurrence: GB)
  Receive Date: 20120627
  Receipt Date: 20121119
  Transmission Date: 20130627
  Serious: Yes (Hospitalization)
  Sender: FDA-Public Use
  Company Number: GB-MYLANLABS-2012S1012042

PATIENT
  Age: 37 Year
  Sex: Male

DRUGS (7)
  1. OMEPRAZOLE [Suspect]
     Indication: ABDOMINAL DISCOMFORT
     Dates: start: 20110603, end: 201110
  2. OMEPRAZOLE [Suspect]
     Indication: ABDOMINAL DISCOMFORT
     Dates: start: 20110427
  3. OMEPRAZOLE [Suspect]
     Indication: ABDOMINAL DISCOMFORT
     Route: 048
     Dates: start: 20110427
  4. DOXYCYCLINE [Concomitant]
     Indication: PRODUCT USED FOR UNKNOWN INDICATION
     Dates: start: 20111114
  5. LAXIDO [Concomitant]
     Indication: PRODUCT USED FOR UNKNOWN INDICATION
     Dates: start: 20111104
  6. QUETIAPINE [Concomitant]
     Indication: PRODUCT USED FOR UNKNOWN INDICATION
  7. TRIMETHOPRIM [Concomitant]
     Indication: PRODUCT USED FOR UNKNOWN INDICATION
     Dates: start: 20111114

REACTIONS (20)
  - Anaemia [Unknown]
  - Anxiety [Unknown]
  - Dry skin [Unknown]
  - Pyrexia [Unknown]
  - Hair colour changes [Unknown]
  - Hyperchlorhydria [Unknown]
  - Jaundice [Unknown]
  - Nausea [Unknown]
  - Photosensitivity reaction [Unknown]
  - Abdominal discomfort [Unknown]
  - Temperature regulation disorder [Unknown]
  - Dental caries [Unknown]
  - Vomiting [Unknown]
  - Abdominal distension [Unknown]
  - Dehydration [Unknown]
  - Gastric polyps [Unknown]
  - Impaired healing [Unknown]
  - Nail disorder [Unknown]
  - Skin discolouration [Unknown]
  - Swelling [Unknown]
